FAERS Safety Report 7037220-6 (Version None)
Quarter: 2010Q4

REPORT INFORMATION
  Report Type: 
  Country: None (occurrence: None)
  Receive Date: 20101011
  Receipt Date: 20101005
  Transmission Date: 20110411
  Serious: Yes (Death, Life-Threatening, Hospitalization)
  Sender: FDA-Public Use
  Company Number: DE-ROCHE-726452

PATIENT
  Sex: Female
  Weight: 85 kg

DRUGS (7)
  1. BLINDED BEVACIZUMAB [Suspect]
     Indication: GLIOBLASTOMA
     Dosage: LAST DOSE PRIOR TO SAE:23 AUG 2010.FORM: INFUSION FREQUENCY EVERY 14 DAYS. PERMANENTLY DISCONTINUED.
     Route: 042
     Dates: start: 20100713, end: 20100913
  2. TEMOZOLOMIDE [Suspect]
     Indication: GLIOBLASTOMA
     Dosage: LAST DOSE PRIOR TO SAE 24 AUG 2010. PERMANENTLY DISCONTINUED.
     Route: 048
     Dates: start: 20100713, end: 20100913
  3. FORTECORTIN [Concomitant]
     Dosage: TOTAL DAILY DOSE: 1-1-1-1
  4. PANTOPRAZOLE SODIUM [Concomitant]
     Dosage: TOTAL DAILY DOSE: 1-0-0
     Dates: start: 20100713
  5. LEVOTHYROXINE SODIUM [Concomitant]
  6. BISOPROLOL [Concomitant]
     Route: 048
  7. RAMIPRIL [Concomitant]
     Route: 048

REACTIONS (2)
  - CONVULSION [None]
  - SEPSIS [None]
